FAERS Safety Report 5293537-7 (Version None)
Quarter: 2007Q2

REPORT INFORMATION
  Report Type: 
  Country: None (occurrence: None)
  Receive Date: 20070411
  Receipt Date: 20070402
  Transmission Date: 20071010
  Serious: Yes (Disabling, Other)
  Sender: FDA-Public Use
  Company Number: GB-GLAXOSMITHKLINE-B0465564A

PATIENT
  Age: 42 Year
  Sex: Male

DRUGS (18)
  1. ZYBAN [Suspect]
     Route: 048
     Dates: start: 20070125, end: 20070126
  2. AMITRIPTYLINE HYDROCHLORIDE [Concomitant]
     Dosage: 10MG TWICE PER DAY
     Route: 048
  3. ATORVASTATIN CALCIUM [Concomitant]
     Dosage: 40MG PER DAY
     Route: 048
  4. CLOPIDOGREL [Concomitant]
     Dosage: 75MG PER DAY
     Route: 048
  5. FENOFIBRATE [Concomitant]
     Dosage: 267MG PER DAY
     Route: 048
  6. FENTANYL [Concomitant]
     Route: 061
  7. GAVISCON [Concomitant]
     Route: 048
  8. GLUCOSAMINE SULPHATE [Concomitant]
     Dosage: 500MG THREE TIMES PER DAY
     Route: 048
  9. GLYCERYL TRINITRATE [Concomitant]
     Route: 048
  10. LANSOPRAZOLE [Concomitant]
     Dosage: 30MG PER DAY
     Route: 048
  11. LOFEPRAMINE [Concomitant]
     Dosage: 70MG TWICE PER DAY
     Route: 048
  12. METOCLOPRAMIDE [Concomitant]
     Dosage: 10MG THREE TIMES PER DAY
     Route: 048
  13. NIQUITIN [Concomitant]
     Route: 061
  14. PREGABALIN [Concomitant]
     Dosage: 25MG TWICE PER DAY
     Route: 048
  15. RAMIPRIL [Concomitant]
     Dosage: 10MG PER DAY
     Route: 048
  16. TILDIEM LA [Concomitant]
     Dosage: 200MG PER DAY
     Route: 048
  17. ZOPICLONE [Concomitant]
     Dosage: 7.5MG PER DAY
     Route: 048
  18. TEGADERM DRESSING [Concomitant]

REACTIONS (2)
  - ABNORMAL SENSATION IN EYE [None]
  - EYE PAIN [None]
